FAERS Safety Report 14216633 (Version 2)
Quarter: 2017Q4

REPORT INFORMATION
  Report Type: Other
  Country: MX (occurrence: MX)
  Receive Date: 20171122
  Receipt Date: 20171129
  Transmission Date: 20180321
  Serious: Yes (Other)
  Sender: FDA-Public Use
  Company Number: MX-BD MEDICAL-2034928

PATIENT
  Sex: Female

DRUGS (1)
  1. BD E-Z SCRUB (POVIDONE-IODINE) [Suspect]
     Active Substance: POVIDONE-IODINE

REACTIONS (5)
  - Product closure issue [None]
  - Product leakage [None]
  - No adverse event [Recovered/Resolved]
  - Product container seal issue [None]
  - Product container issue [None]
